FAERS Safety Report 12603605 (Version 1)
Quarter: 2016Q3

REPORT INFORMATION
  Report Type: Spontaneous
  Country: US (occurrence: US)
  Receive Date: 20160728
  Receipt Date: 20160728
  Transmission Date: 20161109
  Serious: No
  Sender: FDA-Public Use
  Company Number: US-AKRIMAX-TIR-2016-0602

PATIENT
  Age: 70 Year

DRUGS (1)
  1. TIROSINT [Suspect]
     Active Substance: LEVOTHYROXINE SODIUM
     Indication: HYPOTHYROIDISM
     Dosage: UPON AWAKENING FOR SEVEN DAYS, ONE DAY OFF, TWO DAYS ON, TWO DAYS OFF
     Route: 048
     Dates: start: 201605, end: 201605

REACTIONS (3)
  - Sleep disorder [Unknown]
  - Drug level above therapeutic [Unknown]
  - Abdominal discomfort [Unknown]

NARRATIVE: CASE EVENT DATE: 201605
